FAERS Safety Report 4576017-3 (Version None)
Quarter: 2005Q1

REPORT INFORMATION
  Report Type: 
  Country: None (occurrence: None)
  Receive Date: 20050209
  Receipt Date: 20050107
  Transmission Date: 20050727
  Serious: Yes (Hospitalization, Other)
  Sender: FDA-Public Use
  Company Number: PHBS2005JP00728

PATIENT
  Age: 69 Year
  Sex: Female
  Weight: 65 kg

DRUGS (3)
  1. SERENACE [Suspect]
     Indication: SCHIZOPHRENIA
     Dosage: 3 MG/DAY
     Route: 048
     Dates: start: 19970101, end: 20050104
  2. MELLARIL [Suspect]
     Dosage: 75 MG/DAY
     Route: 048
     Dates: start: 19970101, end: 20050104
  3. LAMISIL [Suspect]
     Indication: NAIL TINEA
     Dosage: 125 MG, QD
     Route: 048
     Dates: start: 20040930, end: 20050104

REACTIONS (14)
  - ASTHENIA [None]
  - BLADDER CATHETERISATION [None]
  - BLOOD CREATINE PHOSPHOKINASE INCREASED [None]
  - BLOOD PRESSURE INCREASED [None]
  - BODY TEMPERATURE INCREASED [None]
  - DEPRESSED LEVEL OF CONSCIOUSNESS [None]
  - DRUG INTERACTION [None]
  - FEELING HOT [None]
  - HEART RATE INCREASED [None]
  - HEPATITIS C ANTIBODY POSITIVE [None]
  - LYMPHOCYTE STIMULATION TEST POSITIVE [None]
  - MALAISE [None]
  - MYALGIA [None]
  - RHABDOMYOLYSIS [None]
